FAERS Safety Report 5067074-9 (Version None)
Quarter: 2006Q3

REPORT INFORMATION
  Report Type: 
  Country: None (occurrence: None)
  Receive Date: 20060801
  Receipt Date: 20051228
  Transmission Date: 20061208
  Serious: Yes (Other)
  Sender: FDA-Public Use
  Company Number: US-GLAXOSMITHKLINE-A0587169A

PATIENT
  Age: 14 Year
  Sex: Male

DRUGS (1)
  1. TUMS E-X TABLETS, ASSORTED BERRIES [Suspect]
     Indication: ABDOMINAL PAIN UPPER
     Route: 048
     Dates: start: 20051217, end: 20051201

REACTIONS (10)
  - HYPERSENSITIVITY [None]
  - JOINT SWELLING [None]
  - OEDEMA PERIPHERAL [None]
  - PARAESTHESIA [None]
  - RASH [None]
  - SPEECH DISORDER [None]
  - SWELLING FACE [None]
  - SWOLLEN TONGUE [None]
  - URTICARIA [None]
  - VOMITING [None]
